FAERS Safety Report 19060602 (Version 4)
Quarter: 2021Q2

REPORT INFORMATION
  Report Type: Report from Study
  Country: JP (occurrence: JP)
  Receive Date: 20210326
  Receipt Date: 20210614
  Transmission Date: 20210717
  Serious: Yes (Other)
  Sender: FDA-Public Use
  Company Number: JP-CELLTRION INC.-2021JP003900

PATIENT

DRUGS (42)
  1. CT?P6 [Suspect]
     Active Substance: INVESTIGATIONAL BIOSIMILARS
     Dosage: 380 MG, QD
     Route: 041
     Dates: start: 20200403, end: 20200403
  2. CT?P6 [Suspect]
     Active Substance: INVESTIGATIONAL BIOSIMILARS
     Dosage: 380 MG, QD
     Route: 041
     Dates: start: 20200424, end: 20200424
  3. CT?P6 [Suspect]
     Active Substance: INVESTIGATIONAL BIOSIMILARS
     Dosage: 330 MG, QD
     Route: 041
     Dates: start: 20201023, end: 20201023
  4. XELODA [Suspect]
     Active Substance: CAPECITABINE
     Indication: HER2 POSITIVE GASTRIC CANCER
     Dosage: 3600 MG, QD
     Route: 048
     Dates: start: 20191213
  5. TEGAFUR/GIMERACIL/OTERACIL POTASSIUM COMBINED DRUG [Suspect]
     Active Substance: GIMERACIL\OTERACIL\TEGAFUR
     Dosage: 80 MG, QD
     Route: 048
     Dates: start: 20200703
  6. TEGAFUR/GIMERACIL/OTERACIL POTASSIUM COMBINED DRUG [Suspect]
     Active Substance: GIMERACIL\OTERACIL\TEGAFUR
     Dosage: 80 MG, QD
     Route: 048
     Dates: start: 20200731
  7. TEGAFUR/GIMERACIL/OTERACIL POTASSIUM COMBINED DRUG [Suspect]
     Active Substance: GIMERACIL\OTERACIL\TEGAFUR
     Dosage: 80 MG, QD
     Route: 048
     Dates: start: 20201120
  8. CT?P6 [Suspect]
     Active Substance: INVESTIGATIONAL BIOSIMILARS
     Dosage: 380 MG, QD
     Route: 041
     Dates: start: 20200131, end: 20200131
  9. OXALIPLATIN. [Suspect]
     Active Substance: OXALIPLATIN
     Dosage: 160 MG, QD
     Route: 041
     Dates: start: 20201023, end: 20201023
  10. XELODA [Suspect]
     Active Substance: CAPECITABINE
     Dosage: 3000 MG, QD
     Route: 048
     Dates: start: 20200221
  11. TEGAFUR/GIMERACIL/OTERACIL POTASSIUM COMBINED DRUG [Suspect]
     Active Substance: GIMERACIL\OTERACIL\TEGAFUR
     Indication: HER2 POSITIVE GASTRIC CANCER
     Dosage: 120 MG, QD
     Route: 048
     Dates: start: 20200424
  12. TEGAFUR/GIMERACIL/OTERACIL POTASSIUM COMBINED DRUG [Suspect]
     Active Substance: GIMERACIL\OTERACIL\TEGAFUR
     Dosage: 100 MG, QD
     Route: 048
     Dates: start: 20200612
  13. TEGAFUR/GIMERACIL/OTERACIL POTASSIUM COMBINED DRUG [Suspect]
     Active Substance: GIMERACIL\OTERACIL\TEGAFUR
     Dosage: 80 MG, QD
     Route: 048
     Dates: start: 20201023
  14. CT?P6 [Suspect]
     Active Substance: INVESTIGATIONAL BIOSIMILARS
     Dosage: 360 MG, QD
     Route: 041
     Dates: start: 20200612, end: 20200612
  15. TEGAFUR/GIMERACIL/OTERACIL POTASSIUM COMBINED DRUG [Suspect]
     Active Substance: GIMERACIL\OTERACIL\TEGAFUR
     Dosage: 80 MG, QD
     Route: 048
     Dates: start: 20200925
  16. CT?P6 [Suspect]
     Active Substance: INVESTIGATIONAL BIOSIMILARS
     Indication: HER2 POSITIVE GASTRIC CANCER
     Dosage: 500 MILLIGRAM, QD
     Route: 041
     Dates: start: 20191213, end: 20191213
  17. CT?P6 [Suspect]
     Active Substance: INVESTIGATIONAL BIOSIMILARS
     Dosage: 380MG, QD
     Route: 041
     Dates: start: 20200110, end: 20200110
  18. OXALIPLATIN. [Suspect]
     Active Substance: OXALIPLATIN
     Dosage: 170 MG, QD
     Route: 041
     Dates: start: 20200522, end: 20200522
  19. CT?P6 [Suspect]
     Active Substance: INVESTIGATIONAL BIOSIMILARS
     Dosage: 380 MG, QD
     Route: 041
     Dates: start: 20200221, end: 20200221
  20. CT?P6 [Suspect]
     Active Substance: INVESTIGATIONAL BIOSIMILARS
     Dosage: 380 MG, QD
     Route: 041
     Dates: start: 20200313, end: 20200313
  21. CT?P6 [Suspect]
     Active Substance: INVESTIGATIONAL BIOSIMILARS
     Dosage: 360 MG, QD
     Route: 041
     Dates: start: 20200502, end: 20200502
  22. CT?P6 [Suspect]
     Active Substance: INVESTIGATIONAL BIOSIMILARS
     Dosage: 360 MG, QD
     Route: 041
     Dates: start: 20200703, end: 20200703
  23. CT?P6 [Suspect]
     Active Substance: INVESTIGATIONAL BIOSIMILARS
     Dosage: 330 MG, QD
     Route: 041
     Dates: start: 20201120, end: 20201120
  24. OXALIPLATIN. [Suspect]
     Active Substance: OXALIPLATIN
     Dosage: 200 MG, QD
     Route: 041
     Dates: start: 20200110, end: 20200110
  25. OXALIPLATIN. [Suspect]
     Active Substance: OXALIPLATIN
     Dosage: 200 MG, QD
     Route: 041
     Dates: start: 20200313, end: 20200313
  26. XELODA [Suspect]
     Active Substance: CAPECITABINE
     Dosage: 3000 MG, QD
     Route: 048
     Dates: start: 20200313
  27. TEGAFUR/GIMERACIL/OTERACIL POTASSIUM COMBINED DRUG [Suspect]
     Active Substance: GIMERACIL\OTERACIL\TEGAFUR
     Dosage: 80 MG, QD
     Route: 048
     Dates: start: 20201218
  28. DECADRON TABLET [Concomitant]
     Indication: PROPHYLAXIS OF NAUSEA AND VOMITING
     Dosage: UNK
     Dates: start: 20200110
  29. OXALIPLATIN. [Suspect]
     Active Substance: OXALIPLATIN
     Indication: HER2 POSITIVE GASTRIC CANCER
     Dosage: 200 MG, QD
     Route: 041
     Dates: start: 20191213, end: 20191213
  30. OXALIPLATIN. [Suspect]
     Active Substance: OXALIPLATIN
     Dosage: 200 MG, QD
     Route: 041
     Dates: start: 20200221, end: 20200221
  31. OXALIPLATIN. [Suspect]
     Active Substance: OXALIPLATIN
     Dosage: 170 MG, QD
     Route: 041
     Dates: start: 20200424, end: 20200424
  32. OXALIPLATIN. [Suspect]
     Active Substance: OXALIPLATIN
     Dosage: 160 MG, QD
     Route: 041
     Dates: start: 20200731, end: 20200731
  33. OXALIPLATIN. [Suspect]
     Active Substance: OXALIPLATIN
     Dosage: 160 MG, QD
     Route: 041
     Dates: start: 20201218, end: 20201218
  34. XELODA [Suspect]
     Active Substance: CAPECITABINE
     Dosage: 3600 MG, QD
     Route: 048
     Dates: start: 20200110
  35. CT?P6 [Suspect]
     Active Substance: INVESTIGATIONAL BIOSIMILARS
     Dosage: 330 MG, QD
     Route: 041
     Dates: start: 20200731, end: 20200731
  36. CT?P6 [Suspect]
     Active Substance: INVESTIGATIONAL BIOSIMILARS
     Dosage: 330 MG, QD
     Route: 041
     Dates: start: 20200828, end: 20200828
  37. CT?P6 [Suspect]
     Active Substance: INVESTIGATIONAL BIOSIMILARS
     Dosage: 330 MG, QD
     Route: 041
     Dates: start: 20200905, end: 20200905
  38. CT?P6 [Suspect]
     Active Substance: INVESTIGATIONAL BIOSIMILARS
     Dosage: 330 MG, QD
     Route: 041
     Dates: start: 20201218, end: 20201218
  39. OXALIPLATIN. [Suspect]
     Active Substance: OXALIPLATIN
     Dosage: 170 MG, QD
     Route: 041
     Dates: start: 20200612, end: 20200612
  40. OXALIPLATIN. [Suspect]
     Active Substance: OXALIPLATIN
     Dosage: 170 MG, QD
     Route: 041
     Dates: start: 20200703, end: 20200703
  41. TEGAFUR/GIMERACIL/OTERACIL POTASSIUM COMBINED DRUG [Suspect]
     Active Substance: GIMERACIL\OTERACIL\TEGAFUR
     Dosage: 100 MG, QD
     Route: 048
     Dates: start: 20200522
  42. DECADRON TABLET [Concomitant]
     Indication: CHEMOTHERAPY

REACTIONS (12)
  - Taste disorder [Not Recovered/Not Resolved]
  - Ejection fraction decreased [Unknown]
  - Palmar-plantar erythrodysaesthesia syndrome [Not Recovered/Not Resolved]
  - Stomatitis [Not Recovered/Not Resolved]
  - Pollakiuria [Not Recovered/Not Resolved]
  - Asteatosis [Not Recovered/Not Resolved]
  - Lung disorder [Unknown]
  - Off label use [Unknown]
  - Diarrhoea [Recovering/Resolving]
  - Underdose [Unknown]
  - Overdose [Unknown]
  - Neuropathy peripheral [Not Recovered/Not Resolved]

NARRATIVE: CASE EVENT DATE: 20191213
